FAERS Safety Report 4984908-4 (Version None)
Quarter: 2006Q2

REPORT INFORMATION
  Report Type: 
  Country: None (occurrence: None)
  Receive Date: 20060427
  Receipt Date: 20060425
  Transmission Date: 20061013
  Serious: Yes (Other)
  Sender: FDA-Public Use
  Company Number: US-GLAXOSMITHKLINE-A0603202A

PATIENT
  Age: 35 Year
  Sex: Female

DRUGS (1)
  1. GOODY'S EXTRA STRENGTH HEADACHE POWDER [Suspect]
     Dates: start: 19890101

REACTIONS (6)
  - CALCINOSIS [None]
  - DEPENDENCE [None]
  - DRUG DEPENDENCE [None]
  - GASTRIC ULCER [None]
  - OESOPHAGEAL ULCER [None]
  - VOMITING [None]
